FAERS Safety Report 4342501-0 (Version None)
Quarter: 2004Q2

REPORT INFORMATION
  Report Type: 
  Country: None (occurrence: None)
  Receive Date: 20040419
  Receipt Date: 20040419
  Transmission Date: 20050107
  Serious: Yes (Death)
  Sender: FDA-Public Use
  Company Number: None

PATIENT
  Age: 66 Year
  Sex: Female
  Weight: 65.7716 kg

DRUGS (2)
  1. SEROQUEL [Suspect]
     Indication: PAIN
     Dosage: 2 TIME DAY
     Dates: start: 20040122
  2. NEURONTIN [Suspect]
     Indication: PAIN
     Dosage: 3 TIMES DAY
     Dates: start: 20040106

REACTIONS (1)
  - COMPLETED SUICIDE [None]
